FAERS Safety Report 15708639 (Version 1)
Quarter: 2018Q4

REPORT INFORMATION
  Report Type: Other
  Country: ES (occurrence: ES)
  Receive Date: 20181211
  Receipt Date: 20181211
  Transmission Date: 20190205
  Serious: Yes (Hospitalization, Other)
  Sender: FDA-Public Use
  Company Number: ES-APOTEX-2018AP026041

PATIENT
  Age: 72 Year
  Sex: Female

DRUGS (7)
  1. CONDROSAN [Concomitant]
     Indication: PAIN
     Route: 065
     Dates: start: 2013
  2. SEBIPROX [Concomitant]
     Active Substance: CICLOPIROX OLAMINE
     Indication: DERMATITIS
     Route: 065
     Dates: start: 2017
  3. AMOXICILLIN, CLAVULANATE [Suspect]
     Active Substance: AMOXICILLIN\CLAVULANATE POTASSIUM
     Indication: NASOPHARYNGITIS
     Dosage: 500 MG, 8H.HOUR
     Route: 048
     Dates: start: 20180130, end: 20180205
  4. DIPROSALIC [Concomitant]
     Active Substance: BETAMETHASONE DIPROPIONATE
     Indication: DERMATITIS
     Dosage: Q.72H
     Route: 048
     Dates: start: 2017
  5. PARACETAMOL [Concomitant]
     Active Substance: ACETAMINOPHEN
     Indication: BRONCHITIS
     Dosage: Q8.H
     Route: 048
     Dates: start: 20141028
  6. PAROXETINA                         /00830801/ [Concomitant]
     Indication: ANXIETY
     Route: 048
     Dates: start: 2010
  7. CALCIO + VITAMINA D [Concomitant]
     Indication: OSTEOPOROSIS
     Dosage: 600 MG/ 400 UI
     Route: 048
     Dates: start: 2014

REACTIONS (6)
  - Asthenia [Recovered/Resolved]
  - Abdominal pain upper [Recovered/Resolved]
  - Faeces discoloured [Recovered/Resolved]
  - Diarrhoea haemorrhagic [Recovered/Resolved]
  - Malaise [Recovered/Resolved]
  - Nausea [Recovered/Resolved]

NARRATIVE: CASE EVENT DATE: 20180206
